FAERS Safety Report 5340784-1 (Version None)
Quarter: 2007Q2

REPORT INFORMATION
  Report Type: 
  Country: None (occurrence: None)
  Receive Date: 20070405
  Receipt Date: 20070103
  Transmission Date: 20071010
  Serious: No
  Sender: FDA-Public Use
  Company Number: US200701000516

PATIENT
  Sex: Female

DRUGS (8)
  1. CYMBALTA [Suspect]
     Indication: PAIN
     Dosage: SEE IMAGE
     Route: 048
  2. ACCOLATE [Concomitant]
  3. MAXZIDE [Concomitant]
  4. CALCIUM (CALCIUM) [Concomitant]
  5. TRAZODONE HCL [Concomitant]
  6. CLARITIN [Concomitant]
  7. XANAX [Concomitant]
  8. DEMADEX [Concomitant]

REACTIONS (5)
  - ANXIETY [None]
  - APATHY [None]
  - DISTURBANCE IN ATTENTION [None]
  - DRUG INEFFECTIVE [None]
  - MUSCLE SPASMS [None]
